FAERS Safety Report 17773229 (Version 1)
Quarter: 2020Q2

REPORT INFORMATION
  Report Type: Spontaneous
  Country: TW (occurrence: TW)
  Receive Date: 20200512
  Receipt Date: 20200512
  Transmission Date: 20200714
  Serious: No
  Sender: FDA-Public Use
  Company Number: TW-ELI_LILLY_AND_COMPANY-TW202005003140

PATIENT
  Sex: Female
  Weight: 59 kg

DRUGS (7)
  1. CLONAZEPAM. [Concomitant]
     Active Substance: CLONAZEPAM
     Indication: PRODUCT USED FOR UNKNOWN INDICATION
     Dosage: 1# HSPRN (AS REPORTED)
     Route: 065
     Dates: start: 20180308, end: 201805
  2. ROSUVASTATIN. [Concomitant]
     Active Substance: ROSUVASTATIN
     Indication: PRODUCT USED FOR UNKNOWN INDICATION
     Dosage: 1# QN (AS REPORTED)
     Route: 065
     Dates: start: 20180412, end: 201805
  3. ALLOPURINOL. [Concomitant]
     Active Substance: ALLOPURINOL
     Indication: PRODUCT USED FOR UNKNOWN INDICATION
     Dosage: 1#, QD (AS REPORTED)
     Route: 065
     Dates: start: 20180308, end: 201805
  4. GEMFIBROZIL. [Concomitant]
     Active Substance: GEMFIBROZIL
     Indication: PRODUCT USED FOR UNKNOWN INDICATION
     Dosage: 1# BIDAC (AS REPORTED)
     Route: 065
     Dates: start: 20180308, end: 201804
  5. PAROXETINE. [Concomitant]
     Active Substance: PAROXETINE
     Indication: PRODUCT USED FOR UNKNOWN INDICATION
     Dosage: 1# HS (AS REPORTED)
     Route: 065
     Dates: start: 20180308, end: 201805
  6. TRAZODONE [Concomitant]
     Active Substance: TRAZODONE HYDROCHLORIDE
     Indication: PRODUCT USED FOR UNKNOWN INDICATION
     Dosage: 0.5# HSPRN (AS REPORTED)
     Route: 065
     Dates: start: 20180308, end: 201805
  7. OLANZAPINE. [Suspect]
     Active Substance: OLANZAPINE
     Indication: MAJOR DEPRESSION
     Dosage: 0.5# HS (AS REPORTED)
     Route: 065
     Dates: start: 20180308, end: 201804

REACTIONS (4)
  - White blood cell count decreased [Unknown]
  - Blood uric acid increased [Unknown]
  - Oedema peripheral [Recovered/Resolved]
  - Blood cholesterol increased [Unknown]

NARRATIVE: CASE EVENT DATE: 20180308
